FAERS Safety Report 24027253 (Version 2)
Quarter: 2024Q3

REPORT INFORMATION
  Report Type: Spontaneous
  Country: TW (occurrence: TW)
  Receive Date: 20240628
  Receipt Date: 20240703
  Transmission Date: 20241017
  Serious: Yes (Hospitalization, Other)
  Sender: AMGEN
  Company Number: TW-PFIZER INC-PV202400081766

PATIENT
  Sex: Female

DRUGS (1)
  1. ENBREL [Suspect]
     Active Substance: BENZYL ALCOHOL\ETANERCEPT
     Indication: Rheumatoid arthritis
     Dosage: 25 MG, BIW
     Route: 058
     Dates: start: 20080813, end: 20240530

REACTIONS (1)
  - Cerebral haemorrhage [Recovered/Resolved with Sequelae]

NARRATIVE: CASE EVENT DATE: 20240501
